FAERS Safety Report 12944906 (Version 2)
Quarter: 2016Q4

REPORT INFORMATION
  Report Type: Other
  Country: DE (occurrence: DE)
  Receive Date: 20161115
  Receipt Date: 20161129
  Transmission Date: 20170207
  Serious: Yes (Other)
  Sender: FDA-Public Use
  Company Number: DE-RARE DISEASE THERAPEUTICS, INC.-1059569

PATIENT
  Sex: Male

DRUGS (4)
  1. IDARUBICIN HYDROCHLORIDE. [Suspect]
     Active Substance: IDARUBICIN HYDROCHLORIDE
     Dates: start: 2009, end: 2010
  2. METHOTREXATE. [Suspect]
     Active Substance: METHOTREXATE
     Dates: start: 2010, end: 2012
  3. TRETINOIN. [Suspect]
     Active Substance: TRETINOIN
     Dates: start: 2009, end: 2010
  4. PURIXAN [Suspect]
     Active Substance: MERCAPTOPURINE
     Indication: ACUTE PROMYELOCYTIC LEUKAEMIA
     Dates: start: 2010, end: 2012

REACTIONS (3)
  - Off label use [None]
  - Aplastic anaemia [Unknown]
  - Myelodysplastic syndrome [Unknown]

NARRATIVE: CASE EVENT DATE: 2010
